FAERS Safety Report 8538380-8 (Version None)
Quarter: 2012Q3

REPORT INFORMATION
  Report Type: 
  Country: None (occurrence: None)
  Receive Date: 20120726
  Receipt Date: 20120724
  Transmission Date: 20120928
  Serious: No
  Sender: FDA-Public Use
  Company Number: US-PFIZER INC-2012179040

PATIENT
  Sex: Female
  Weight: 64.399 kg

DRUGS (3)
  1. CHANTIX [Suspect]
     Indication: SMOKING CESSATION THERAPY
     Dosage: 0.5 MG, DAILY
     Dates: start: 20120713
  2. HUMIRA [Concomitant]
     Dosage: UNK, EVERY OTHER WEEK
  3. CLONAZEPAM [Concomitant]
     Indication: ANXIETY
     Dosage: 0.5 MG, DAILY

REACTIONS (3)
  - PAROSMIA [None]
  - NAUSEA [None]
  - EATING DISORDER [None]
